FAERS Safety Report 10086353 (Version 1)
Quarter: 2014Q2

REPORT INFORMATION
  Report Type: Report from Study
  Country: US (occurrence: US)
  Receive Date: 20140418
  Receipt Date: 20140418
  Transmission Date: 20141212
  Serious: Yes (Hospitalization)
  Sender: FDA-Public Use
  Company Number: US-JNJFOC-20140409375

PATIENT
  Age: 34 Year
  Sex: Male
  Weight: 97.52 kg

DRUGS (4)
  1. REMICADE [Suspect]
     Indication: CROHN^S DISEASE
     Route: 042
     Dates: start: 2010, end: 201404
  2. OMEPRAZOLE [Concomitant]
     Indication: CROHN^S DISEASE
     Route: 065
     Dates: start: 2010
  3. SUCRALFATE [Concomitant]
     Indication: CROHN^S DISEASE
     Dosage: DAILY
     Route: 065
  4. BUDESONIDE [Concomitant]
     Indication: CROHN^S DISEASE
     Route: 048

REACTIONS (3)
  - Pneumothorax [Unknown]
  - Atypical pneumonia [Unknown]
  - Tuberculosis [Not Recovered/Not Resolved]
